FAERS Safety Report 6152833-1 (Version None)
Quarter: 2009Q2

REPORT INFORMATION
  Report Type: 
  Country: None (occurrence: None)
  Receive Date: 20090413
  Receipt Date: 20090403
  Transmission Date: 20091009
  Serious: Yes (Death)
  Sender: FDA-Public Use
  Company Number: US-PFIZER INC-2004242507US

PATIENT
  Age: 63 Year
  Sex: Male

DRUGS (3)
  1. CELEBREX [Suspect]
     Indication: ARTHRITIS
     Route: 065
  2. THALIDOMIDE [Suspect]
     Indication: BRAIN NEOPLASM
     Dosage: 400 MG, 1X/DAY
     Route: 048
     Dates: start: 20040622, end: 20040824
  3. TEMOZOLOMIDE [Suspect]

REACTIONS (5)
  - DISEASE PROGRESSION [None]
  - DIVERTICULITIS [None]
  - HYPOTENSION [None]
  - RENAL FAILURE [None]
  - SEPSIS [None]
